FAERS Safety Report 22135106 (Version 1)
Quarter: 2023Q1

REPORT INFORMATION
  Report Type: Spontaneous
  Country: DE (occurrence: None)
  Receive Date: 20230324
  Receipt Date: 20230324
  Transmission Date: 20230417
  Serious: Yes (Other)
  Sender: FDA-Public Use
  Company Number: DE-ALM-HQ-DE-2023-0377

PATIENT
  Age: 76 Year
  Sex: Male

DRUGS (3)
  1. KLISYRI [Suspect]
     Active Substance: TIRBANIBULIN
     Indication: Actinic keratosis
     Dosage: 3 APPLICATIONS IN TOTAL
     Dates: start: 202209
  2. ENALAPRIL [Concomitant]
     Active Substance: ENALAPRIL
  3. TAMSULOSIN [Concomitant]
     Active Substance: TAMSULOSIN

REACTIONS (3)
  - Herpes zoster [Recovered/Resolved]
  - Skin necrosis [Recovered/Resolved]
  - Neuralgia [Recovered/Resolved]
